FAERS Safety Report 14669562 (Version 1)
Quarter: 2018Q1

REPORT INFORMATION
  Report Type: Report from Study
  Country: None (occurrence: US)
  Receive Date: 20180322
  Receipt Date: 20180322
  Transmission Date: 20180509
  Serious: Yes (Other)
  Sender: FDA-Public Use
  Company Number: US-ABBVIE-18K-163-2295187-00

PATIENT
  Age: 32 Year
  Sex: Male
  Weight: 114.23 kg

DRUGS (7)
  1. PREDNISONE. [Concomitant]
     Active Substance: PREDNISONE
     Indication: PRODUCT USED FOR UNKNOWN INDICATION
  2. TOPIRAMATE. [Concomitant]
     Active Substance: TOPIRAMATE
     Indication: PRODUCT USED FOR UNKNOWN INDICATION
  3. METHOTREXATE. [Suspect]
     Active Substance: METHOTREXATE
     Indication: PRODUCT USED FOR UNKNOWN INDICATION
     Route: 065
  4. HUMIRA [Suspect]
     Active Substance: ADALIMUMAB
     Indication: PSORIATIC ARTHROPATHY
     Route: 058
     Dates: start: 2015, end: 201801
  5. MELOXICAM. [Concomitant]
     Active Substance: MELOXICAM
     Indication: PSORIATIC ARTHROPATHY
  6. HUMIRA [Suspect]
     Active Substance: ADALIMUMAB
     Route: 058
     Dates: start: 20180316
  7. FOLIC ACID. [Concomitant]
     Active Substance: FOLIC ACID
     Indication: PRODUCT USED FOR UNKNOWN INDICATION

REACTIONS (16)
  - Adverse drug reaction [Recovering/Resolving]
  - Vasculitis [Not Recovered/Not Resolved]
  - Headache [Recovered/Resolved]
  - Post concussion syndrome [Recovered/Resolved]
  - Hypersensitivity vasculitis [Recovering/Resolving]
  - Epistaxis [Recovered/Resolved]
  - Loss of consciousness [Recovered/Resolved]
  - Road traffic accident [Unknown]
  - Lung disorder [Recovered/Resolved]
  - Dizziness [Recovered/Resolved]
  - Paraesthesia [Recovered/Resolved]
  - Urticaria [Recovering/Resolving]
  - Dyspnoea [Recovered/Resolved]
  - Fatigue [Recovered/Resolved]
  - Amnesia [Recovered/Resolved]
  - Rash [Recovering/Resolving]

NARRATIVE: CASE EVENT DATE: 201609
